FAERS Safety Report 16971528 (Version 6)
Quarter: 2020Q2

REPORT INFORMATION
  Report Type: Report from Study
  Country: MX (occurrence: MX)
  Receive Date: 20191029
  Receipt Date: 20200430
  Transmission Date: 20200713
  Serious: Yes (Hospitalization, Other)
  Sender: FDA-Public Use
  Company Number: NVSC2019MX018387

PATIENT
  Age: 76 Year
  Sex: Female
  Weight: 69 kg

DRUGS (11)
  1. ULTIBRO BREEZHALER [Suspect]
     Active Substance: GLYCOPYRRONIUM\INDACATEROL
     Dosage: 1 DF, QD
     Route: 055
     Dates: start: 20191112, end: 202004
  2. SYMBICORT [Concomitant]
     Active Substance: BUDESONIDE\FORMOTEROL FUMARATE DIHYDRATE
     Indication: CHRONIC OBSTRUCTIVE PULMONARY DISEASE
     Route: 065
  3. ARAHKOR [Concomitant]
     Indication: HYPERTENSION
     Dosage: 1 DF, QD
     Route: 048
  4. ATROVENT [Concomitant]
     Active Substance: IPRATROPIUM BROMIDE
     Indication: CHRONIC OBSTRUCTIVE PULMONARY DISEASE
     Route: 065
  5. MIFLONIDE [Suspect]
     Active Substance: BUDESONIDE
     Indication: CHRONIC OBSTRUCTIVE PULMONARY DISEASE
     Dosage: 2 DF (400 UG), QD (STARTED 1 YEAR AND 3 MONTHS AGO)
     Route: 055
     Dates: end: 20191010
  6. MIFLONIDE [Suspect]
     Active Substance: BUDESONIDE
     Dosage: 2 DF, QD (400 MCG)
     Route: 055
     Dates: start: 20191112
  7. LOPRESOR RETARD [Suspect]
     Active Substance: METOPROLOL
     Indication: HYPERTENSION
     Dosage: 1 DF, QD (STARTED 1.5 YEAR AGO AND STOPPED 8 MONTHS AGO)
     Route: 048
  8. ELATEC [Concomitant]
     Indication: POOR PERIPHERAL CIRCULATION
     Dosage: 1 DF, QD (1000)
     Route: 048
     Dates: start: 201910
  9. ULTIBRO BREEZHALER [Suspect]
     Active Substance: GLYCOPYRRONIUM\INDACATEROL
     Indication: CHRONIC OBSTRUCTIVE PULMONARY DISEASE
     Dosage: 1 DF, QD (STARTED 1 YEAR AND 3 MONTHS AGO)
     Route: 055
     Dates: end: 20191010
  10. PULMICORT TURBUHALER [Concomitant]
     Active Substance: BUDESONIDE
     Indication: CHRONIC OBSTRUCTIVE PULMONARY DISEASE
     Route: 065
  11. CO-DIOVAN [Suspect]
     Active Substance: HYDROCHLOROTHIAZIDE\VALSARTAN
     Indication: HYPERTENSION
     Dosage: 1 DF, QD (HYDROCHLOROTHIAZIDE 12.5 MG, VALSARTAN 320 MG) (APPROXIMATELY 14 YEARS AGO)
     Route: 048
     Dates: start: 2005, end: 20191010

REACTIONS (9)
  - Blood pressure increased [Recovered/Resolved]
  - Headache [Recovered/Resolved]
  - Tremor [Recovered/Resolved]
  - Bronchospasm [Not Recovered/Not Resolved]
  - Angina pectoris [Not Recovered/Not Resolved]
  - Epistaxis [Recovered/Resolved]
  - Halo vision [Recovered/Resolved]
  - Halo vision [Recovered/Resolved]
  - Drug ineffective [Unknown]

NARRATIVE: CASE EVENT DATE: 201909
